FAERS Safety Report 5627204-4 (Version None)
Quarter: 2008Q1

REPORT INFORMATION
  Report Type: 
  Country: None (occurrence: None)
  Receive Date: 20080212
  Receipt Date: 20080212
  Transmission Date: 20080703
  Serious: No
  Sender: FDA-Public Use
  Company Number: None

PATIENT
  Sex: Male
  Weight: 99.7913 kg

DRUGS (3)
  1. CLARITHROMYCIN [Suspect]
     Indication: NASOPHARYNGITIS
     Dosage: ONE TABLET 2XDAY PO
     Route: 048
     Dates: start: 20080205, end: 20080212
  2. CLARITHROMYCIN [Suspect]
     Indication: RESPIRATORY DISORDER
     Dosage: ONE TABLET 2XDAY PO
     Route: 048
     Dates: start: 20080205, end: 20080212
  3. BENZONATATE [Suspect]
     Indication: RESPIRATORY DISORDER
     Dosage: ONE TABLET 3XDAY PO
     Route: 048
     Dates: start: 20080205, end: 20080212

REACTIONS (11)
  - AGGRESSION [None]
  - DIZZINESS [None]
  - DRUG INTERACTION [None]
  - DRY MOUTH [None]
  - DYSGEUSIA [None]
  - DYSPNOEA [None]
  - FATIGUE [None]
  - HEADACHE [None]
  - INITIAL INSOMNIA [None]
  - MIDDLE INSOMNIA [None]
  - NIGHTMARE [None]
